FAERS Safety Report 6991683-0 (Version None)
Quarter: 2010Q3

REPORT INFORMATION
  Report Type: 
  Country: None (occurrence: None)
  Receive Date: 20100917
  Receipt Date: 20100907
  Transmission Date: 20110219
  Serious: Yes (Other)
  Sender: FDA-Public Use
  Company Number: PHHY2009CA51142

PATIENT
  Sex: Female

DRUGS (2)
  1. ZOLEDRONIC [Suspect]
     Indication: OSTEOPOROSIS
     Dosage: 5 MG
     Route: 042
     Dates: start: 20091120
  2. ZOLEDRONIC [Suspect]
     Dosage: 5 MG
     Route: 042
     Dates: start: 20080820

REACTIONS (9)
  - ASTHENIA [None]
  - CHILLS [None]
  - FEELING ABNORMAL [None]
  - HEADACHE [None]
  - NAUSEA [None]
  - PERIARTHRITIS [None]
  - PYREXIA [None]
  - RHINORRHOEA [None]
  - VOMITING [None]
